FAERS Safety Report 13841861 (Version 1)
Quarter: 2017Q3

REPORT INFORMATION
  Report Type: Report from Study
  Country: US (occurrence: US)
  Receive Date: 20170807
  Receipt Date: 20170807
  Transmission Date: 20171127
  Serious: No
  Sender: FDA-Public Use
  Company Number: US-AMGEN-USASL2017043516

PATIENT
  Age: 75 Year
  Sex: Male

DRUGS (1)
  1. NPLATE [Suspect]
     Active Substance: ROMIPLOSTIM
     Indication: IMMUNE THROMBOCYTOPENIC PURPURA
     Dosage: 250 MUG, UNK
     Route: 065
     Dates: start: 2016

REACTIONS (5)
  - Flatulence [Unknown]
  - Platelet count abnormal [Unknown]
  - Sleep disorder due to a general medical condition [Unknown]
  - Gastrointestinal pain [Unknown]
  - Headache [Unknown]

NARRATIVE: CASE EVENT DATE: 2017
